FAERS Safety Report 14978332 (Version 7)
Quarter: 2018Q4

REPORT INFORMATION
  Report Type: Spontaneous
  Country: DE (occurrence: DE)
  Receive Date: 20180606
  Receipt Date: 20181029
  Transmission Date: 20190204
  Serious: Yes (Other)
  Sender: FDA-Public Use
  Company Number: PHHY2018DE014117

PATIENT

DRUGS (12)
  1. TRASTUZUMAB. [Suspect]
     Active Substance: TRASTUZUMAB
     Dosage: 06  MG/KG (21 DAYS) (8 + 6)
     Route: 065
     Dates: start: 20170425
  2. TRASTUZUMAB. [Suspect]
     Active Substance: TRASTUZUMAB
     Dosage: 3.6 MG/KG, 21 DAYS
     Route: 065
     Dates: start: 20180522
  3. TRASTUZUMAB EMTANSINE [Suspect]
     Active Substance: ADO-TRASTUZUMAB EMTANSINE
     Indication: BREAST CANCER
     Dosage: 3.6 MG/KG, 21 DAYS
     Route: 065
     Dates: start: 20180522
  4. ZOMETA [Suspect]
     Active Substance: ZOLEDRONIC ACID
     Indication: PRODUCT USED FOR UNKNOWN INDICATION
     Dosage: 4 MG, UNK
     Route: 065
     Dates: start: 20170628
  5. PACLITAXEL. [Suspect]
     Active Substance: PACLITAXEL
     Indication: HER-2 POSITIVE BREAST CANCER
     Dosage: 80 MG/M2, UNK (DAY 1, 8, 15 OF A CYCLE OF 21 DAYS)
     Route: 065
  6. PERTUZUMAB. [Suspect]
     Active Substance: PERTUZUMAB
     Indication: HER-2 POSITIVE BREAST CANCER
     Dosage: 840 MG, UNK (LOADING DOSE)
     Route: 065
  7. ANASTROZOL [Suspect]
     Active Substance: ANASTROZOLE
     Indication: BREAST CANCER
     Dosage: 1 MG, UNK
     Route: 065
  8. PERTUZUMAB. [Suspect]
     Active Substance: PERTUZUMAB
     Dosage: 420 MG, 21 DAYS
     Route: 065
     Dates: start: 20170425
  9. LETROZOL [Suspect]
     Active Substance: LETROZOLE
     Indication: BREAST CANCER
     Dosage: 2.5 MG, QD
     Route: 065
     Dates: start: 20180522
  10. PERTUZUMAB. [Suspect]
     Active Substance: PERTUZUMAB
     Dosage: LOADING DOSE
     Route: 065
  11. TRASTUZUMAB. [Suspect]
     Active Substance: TRASTUZUMAB
     Indication: HER-2 POSITIVE BREAST CANCER
     Dosage: 8 MG/KG (LOADING DOSE)
     Route: 065
  12. TRASTUZUMAB. [Suspect]
     Active Substance: TRASTUZUMAB
     Dosage: LOADING DOSE
     Route: 065

REACTIONS (12)
  - Skin toxicity [Recovered/Resolved]
  - Skin toxicity [Recovered/Resolved]
  - Polyneuropathy [Not Recovered/Not Resolved]
  - Nail discolouration [Recovered/Resolved]
  - Stomatitis [Recovered/Resolved]
  - Vomiting [Recovered/Resolved]
  - Nail discolouration [Recovered/Resolved]
  - Flank pain [Recovered/Resolved]
  - Nausea [Recovered/Resolved]
  - Stomatitis [Recovered/Resolved]
  - Dry skin [Recovered/Resolved]
  - Pain in extremity [Recovered/Resolved]

NARRATIVE: CASE EVENT DATE: 20170510
